FAERS Safety Report 22263697 (Version 1)
Quarter: 2023Q2

REPORT INFORMATION
  Report Type: Spontaneous
  Country: US (occurrence: US)
  Receive Date: 20230428
  Receipt Date: 20230428
  Transmission Date: 20230722
  Serious: No
  Sender: FDA-Public Use
  Company Number: US-TARO PHARMACEUTICALS USA INC.-2022TAR01335

PATIENT

DRUGS (1)
  1. FLUOROURACIL [Suspect]
     Active Substance: FLUOROURACIL
     Indication: Actinic keratosis
     Dosage: UNK, BID, ON A Q-TIP, TOPICALLY TO LESION NEAR LEFT EYE
     Route: 061
     Dates: start: 20221028, end: 20221102

REACTIONS (3)
  - Swelling of eyelid [Recovered/Resolved]
  - Dermatochalasis [Recovered/Resolved]
  - Incorrect dose administered [Unknown]

NARRATIVE: CASE EVENT DATE: 20221029
